FAERS Safety Report 15271796 (Version 2)
Quarter: 2018Q3

REPORT INFORMATION
  Report Type: Spontaneous
  Country: DE (occurrence: DE)
  Receive Date: 20180813
  Receipt Date: 20180813
  Transmission Date: 20181010
  Serious: Yes (Hospitalization, Other)
  Sender: FDA-Public Use
  Company Number: PHHY2018DE069558

PATIENT
  Sex: Female

DRUGS (21)
  1. VINCRISTINE [Suspect]
     Active Substance: VINCRISTINE
     Indication: B-CELL LYMPHOMA
     Dosage: 1 MG,QD
     Route: 042
     Dates: start: 20150320, end: 20150320
  2. CHOLECALCIFEROL [Concomitant]
     Active Substance: CHOLECALCIFEROL
     Indication: VITAMIN D DEFICIENCY
     Dosage: 2000 IU, QW
     Route: 048
     Dates: start: 20150311
  3. DOMPERIDONE [Concomitant]
     Active Substance: DOMPERIDONE
     Indication: NAUSEA
     Dosage: 10 MG, TID
     Route: 048
     Dates: start: 20150401
  4. METOPROLOL. [Concomitant]
     Active Substance: METOPROLOL
     Indication: DIABETES MELLITUS
     Dosage: 95 MG, QD
     Route: 048
  5. RITUXIMAB. [Suspect]
     Active Substance: RITUXIMAB
     Indication: B-CELL LYMPHOMA
     Dosage: 660 MG, QD
     Route: 042
     Dates: start: 20150319, end: 20150319
  6. BISACODYL. [Concomitant]
     Active Substance: BISACODYL
     Indication: CONSTIPATION
     Dosage: UNK UNK,BID
     Route: 048
  7. ACICLOVIR [Concomitant]
     Active Substance: ACYCLOVIR
     Indication: INFECTION PROPHYLAXIS
     Dosage: 1600 MG,QID
     Route: 048
     Dates: start: 20150317
  8. ENOXAPARIN SODIUM. [Concomitant]
     Active Substance: ENOXAPARIN SODIUM
     Indication: THROMBOSIS PROPHYLAXIS
     Dosage: 4 ML,QD
     Route: 058
     Dates: start: 2015
  9. PREDNISOLONE. [Suspect]
     Active Substance: PREDNISOLONE
     Indication: B-CELL LYMPHOMA
     Dosage: 100 MG, QD
     Route: 048
     Dates: start: 20150320, end: 20150324
  10. DIPYRONE [Concomitant]
     Active Substance: DIPYRONE
     Indication: TUMOUR PAIN
     Dosage: UNK UNK,TID
     Route: 048
  11. DOMPERIDONE [Concomitant]
     Active Substance: DOMPERIDONE
     Dosage: 10 MG, TID
     Route: 048
     Dates: start: 20150225
  12. AMITRIPTYLIN [Concomitant]
     Active Substance: AMITRIPTYLINE
     Indication: TUMOUR PAIN
     Dosage: 25 MG, QD
     Route: 048
     Dates: start: 20150227
  13. AMLODIPINE [Concomitant]
     Active Substance: AMLODIPINE BESYLATE
     Indication: HYPERTENSION
     Dosage: 5 MG, QD
     Route: 048
  14. CYCLOPHOSPHAMIDE. [Suspect]
     Active Substance: CYCLOPHOSPHAMIDE
     Indication: B-CELL LYMPHOMA
     Dosage: 1320 MG,QD
     Route: 042
     Dates: start: 20150320, end: 20150320
  15. DOXORUBICIN [Suspect]
     Active Substance: DOXORUBICIN
     Indication: B-CELL LYMPHOMA
     Dosage: 88 MG, QD
     Route: 042
     Dates: start: 20150320, end: 20150320
  16. SULFAMETHOXAZOLE W/TRIMETHOPRIM [Concomitant]
     Active Substance: SULFAMETHOXAZOLE\TRIMETHOPRIM
     Indication: INFECTION PROPHYLAXIS
     Dosage: 3840 MG, UNK
     Route: 048
     Dates: start: 20150321
  17. METOPROLOL. [Concomitant]
     Active Substance: METOPROLOL
     Indication: HYPERTENSION
     Dosage: 250 MG, BID
     Route: 048
  18. METFORMIN [Concomitant]
     Active Substance: METFORMIN HYDROCHLORIDE
     Indication: DIABETES MELLITUS
     Dosage: 250 MG, BID
     Route: 048
  19. PANTOPRAZOLE SODIUM. [Concomitant]
     Active Substance: PANTOPRAZOLE SODIUM
     Indication: PROPHYLAXIS AGAINST GASTROINTESTINAL ULCER
     Dosage: 40 MG, QD
     Route: 048
     Dates: start: 2015
  20. PEGFILGRASTIM [Suspect]
     Active Substance: PEGFILGRASTIM
     Indication: B-CELL LYMPHOMA
     Dosage: 6 MG, QD
     Route: 058
     Dates: start: 20150325, end: 20150325
  21. HYDROMORPHONE [Concomitant]
     Active Substance: HYDROMORPHONE
     Indication: TUMOUR PAIN
     Dosage: 10 MG,BID
     Route: 048
     Dates: start: 20150224

REACTIONS (3)
  - Arrhythmia [Unknown]
  - Nausea [Recovered/Resolved]
  - Nausea [Recovered/Resolved]

NARRATIVE: CASE EVENT DATE: 20150321
